FAERS Safety Report 18780935 (Version 1)
Quarter: 2021Q1

REPORT INFORMATION
  Report Type: Spontaneous
  Country: US (occurrence: US)
  Receive Date: 20210123
  Receipt Date: 20210123
  Transmission Date: 20210419
  Serious: Yes (Life-Threatening, Hospitalization)
  Sender: FDA-Public Use
  Company Number: None

PATIENT
  Age: 95 Year
  Sex: Female
  Weight: 50.4 kg

DRUGS (5)
  1. HYDRALYZINE [Concomitant]
  2. FAMOTIDINE. [Concomitant]
     Active Substance: FAMOTIDINE
  3. PREDNISONE. [Concomitant]
     Active Substance: PREDNISONE
  4. METAPROLOL [Concomitant]
     Active Substance: METOPROLOL
  5. MYCOPHENOLATE [Suspect]
     Active Substance: MYCOPHENOLIC ACID
     Dosage: ?          QUANTITY:5 TABLET(S);OTHER FREQUENCY:3 MORNING, 2 NIGHT;?
     Route: 048
     Dates: start: 20190911, end: 20200219

REACTIONS (1)
  - Haemoglobin decreased [None]

NARRATIVE: CASE EVENT DATE: 20200218
